FAERS Safety Report 7878313-0 (Version None)
Quarter: 2011Q4

REPORT INFORMATION
  Report Type: 
  Country: None (occurrence: None)
  Receive Date: 20111101
  Receipt Date: 20111024
  Transmission Date: 20120403
  Serious: Yes (Hospitalization, Other)
  Sender: FDA-Public Use
  Company Number: FR-BRISTOL-MYERS SQUIBB COMPANY-16192312

PATIENT
  Age: 57 Year
  Sex: Female
  Weight: 55 kg

DRUGS (11)
  1. IPILIMUMAB [Suspect]
     Indication: METASTATIC MALIGNANT MELANOMA
     Dosage: 2 INF.1ST INF:7SEP11,2ND INF 28SEP11.BOTH INF AT DOSE:141MG.
     Route: 042
  2. PANTOPRAZOLE [Concomitant]
  3. HALDOL [Concomitant]
     Dosage: 1DF=5 DROPS.
  4. PREDNISOLONE [Concomitant]
     Dosage: 2 TABS
  5. DEBRIDAT [Concomitant]
     Dosage: 3 SACHETS/D
  6. EPREX [Concomitant]
     Indication: ANAEMIA
     Dosage: ONE INJECTION PER WEEK
     Route: 058
  7. OXYCONTIN [Concomitant]
     Dosage: 2 TABS
     Route: 048
  8. AMITRIPTYLINE HCL [Concomitant]
     Dosage: DROPS.
     Route: 048
  9. ACETAMINOPHEN [Concomitant]
     Dosage: 4 TABS,DOSE: 1G, 3TAB/D
     Route: 048
  10. LYRICA [Concomitant]
     Dosage: 2 TABS
  11. OXYCODONE HCL [Concomitant]

REACTIONS (2)
  - INTESTINAL OBSTRUCTION [None]
  - ILEITIS [None]
